FAERS Safety Report 18889785 (Version 1)
Quarter: 2021Q1

REPORT INFORMATION
  Report Type: Spontaneous
  Country: GB (occurrence: GB)
  Receive Date: 20210213
  Receipt Date: 20210213
  Transmission Date: 20210420
  Serious: Yes (Hospitalization, Disabling)
  Sender: FDA-Public Use
  Company Number: NVSC2021GB028722

PATIENT
  Age: 33 Year
  Sex: Male

DRUGS (2)
  1. DABRAFENIB [Suspect]
     Active Substance: DABRAFENIB
     Indication: ADJUVANT THERAPY
     Dosage: 150 MG, BID
     Route: 048
     Dates: start: 20201112, end: 20201224
  2. TRAMETINIB [Suspect]
     Active Substance: TRAMETINIB
     Indication: ADJUVANT THERAPY
     Dosage: 2 MG, QD
     Route: 048
     Dates: start: 20201112, end: 20201224

REACTIONS (5)
  - Facial paralysis [Unknown]
  - Facial paresis [Unknown]
  - Deafness unilateral [Unknown]
  - Peripheral sensorimotor neuropathy [Not Recovered/Not Resolved]
  - Pain [Unknown]

NARRATIVE: CASE EVENT DATE: 20201218
